FAERS Safety Report 5940668-1 (Version None)
Quarter: 2008Q4

REPORT INFORMATION
  Report Type: 
  Country: None (occurrence: None)
  Receive Date: 20081103
  Receipt Date: 20081103
  Transmission Date: 20090506
  Serious: Yes (Life-Threatening, Hospitalization, Other)
  Sender: FDA-Public Use
  Company Number: None

PATIENT
  Sex: Female
  Weight: 90.7194 kg

DRUGS (3)
  1. KEPPRA [Suspect]
     Indication: EPILEPSY
     Dosage: 2 1/2 WEEKS 2 1/2 MONTHS
  2. LYRICA [Suspect]
     Dosage: 4 1/2 MONTHS
  3. FORESMIDE - GENERIC (?) [Suspect]

REACTIONS (17)
  - ABASIA [None]
  - BLINDNESS [None]
  - BRAIN OEDEMA [None]
  - CONDITION AGGRAVATED [None]
  - CONVULSION [None]
  - DIPLOPIA [None]
  - DISTURBANCE IN ATTENTION [None]
  - DIZZINESS [None]
  - GINGIVAL SWELLING [None]
  - HAEMORRHAGE [None]
  - HEADACHE [None]
  - LOSS OF CONSCIOUSNESS [None]
  - OEDEMA MOUTH [None]
  - RASH [None]
  - SWELLING [None]
  - TREMOR [None]
  - WEIGHT DECREASED [None]
